FAERS Safety Report 7331304-0 (Version None)
Quarter: 2011Q1

REPORT INFORMATION
  Report Type: 
  Country: None (occurrence: None)
  Receive Date: 20110302
  Receipt Date: 20110302
  Transmission Date: 20110831
  Serious: Yes (Other)
  Sender: FDA-Public Use
  Company Number: None

PATIENT
  Sex: Female
  Weight: 54.4316 kg

DRUGS (1)
  1. ALCOHOL PREP PAD 70% ISOPROPYL ALCOHOL TRIAD GROUP, INC [Suspect]
     Indication: THERAPEUTIC SKIN CARE TOPICAL
     Dosage: 2-3 PADS FOR CLEANSING UP TO 3X WEEKLY
     Dates: start: 20100420, end: 20110228

REACTIONS (5)
  - CATHETER SITE INFECTION [None]
  - WHITE BLOOD CELL COUNT INCREASED [None]
  - PAIN [None]
  - BRONCHOPNEUMONIA [None]
  - CHROMATURIA [None]
